FAERS Safety Report 7398254-5 (Version None)
Quarter: 2011Q2

REPORT INFORMATION
  Report Type: 
  Country: None (occurrence: None)
  Receive Date: 20110406
  Receipt Date: 20110328
  Transmission Date: 20111010
  Serious: Yes (Hospitalization)
  Sender: FDA-Public Use
  Company Number: US-WATSON-2011-04085

PATIENT
  Age: 68 Year
  Sex: Male
  Weight: 65.3 kg

DRUGS (9)
  1. RAPAFLO [Suspect]
     Indication: URINARY INCONTINENCE
  2. ASPIRIN [Concomitant]
     Indication: PRODUCT USED FOR UNKNOWN INDICATION
     Dosage: 81 MG, DAILY
     Route: 048
     Dates: start: 20110201
  3. LIPITOR [Concomitant]
     Indication: BLOOD CHOLESTEROL INCREASED
     Dosage: 40 MG, DAILY
     Route: 048
     Dates: start: 20010101
  4. RAPAFLO [Suspect]
     Indication: BENIGN PROSTATIC HYPERPLASIA
     Dosage: 8 MG, DAILY
     Route: 048
     Dates: start: 20100601
  5. HYDROCHLOROTHIAZIDE [Concomitant]
     Dosage: UNK
     Route: 048
     Dates: end: 20110201
  6. CITALOPRAM HYDROBROMIDE [Suspect]
     Indication: PRODUCT USED FOR UNKNOWN INDICATION
     Dosage: 20 MG, DAILY
     Route: 048
     Dates: start: 20100301
  7. TOPROL-XL [Concomitant]
     Indication: PULSE ABNORMAL
     Dosage: SLIDING SCALE
     Route: 048
     Dates: start: 20110201
  8. PRILOSEC [Concomitant]
     Indication: PRODUCT USED FOR UNKNOWN INDICATION
     Dosage: 20 MG, DAILY
     Route: 048
  9. CLONAZEPAM [Concomitant]
     Indication: MUSCLE SPASMS
     Dosage: 1 MG, DAILY
     Route: 048

REACTIONS (5)
  - URINARY INCONTINENCE [None]
  - CORONARY ARTERY OCCLUSION [None]
  - DRUG INEFFECTIVE [None]
  - DRUG INTERACTION [None]
  - FEELING OF BODY TEMPERATURE CHANGE [None]
